FAERS Safety Report 4427450-1 (Version None)
Quarter: 2004Q3

REPORT INFORMATION
  Report Type: 
  Country: None (occurrence: None)
  Receive Date: 20040812
  Receipt Date: 20040730
  Transmission Date: 20050211
  Serious: Yes (Death, Hospitalization)
  Sender: FDA-Public Use
  Company Number: 02100-JPN-04-0211

PATIENT
  Age: 54 Year
  Sex: Female

DRUGS (11)
  1. CILOSTAZOL [Suspect]
     Indication: SHUNT OCCLUSION
     Dosage: 100 MG
     Route: 048
     Dates: end: 20040702
  2. PRECIPITATED CALCIUM CARBONATE [Concomitant]
  3. SENNOSIDE [Concomitant]
  4. HUMAN INSULIN [Concomitant]
  5. EPOETIN ALFA [Concomitant]
  6. HEPARIN SODIUM [Concomitant]
  7. TEPRENONE [Concomitant]
  8. CIMETIDINE [Concomitant]
  9. EPOETIN BETA [Concomitant]
  10. SEVELAMER HYDROCHLORIDE [Concomitant]
  11. LACTULOSE [Concomitant]

REACTIONS (10)
  - BLOOD PRESSURE DIASTOLIC INCREASED [None]
  - BLOOD PRESSURE SYSTOLIC INCREASED [None]
  - DIABETES MELLITUS INADEQUATE CONTROL [None]
  - FALL [None]
  - HAEMODIALYSIS [None]
  - HYDROCEPHALUS [None]
  - INTRAVENTRICULAR HAEMORRHAGE [None]
  - PUTAMEN HAEMORRHAGE [None]
  - TREATMENT NONCOMPLIANCE [None]
  - VASCULAR FRAGILITY [None]
